FAERS Safety Report 17162981 (Version 1)
Quarter: 2019Q4

REPORT INFORMATION
  Report Type: Spontaneous
  Country: US (occurrence: US)
  Receive Date: 20191217
  Receipt Date: 20191217
  Transmission Date: 20200122
  Serious: Yes (Life-Threatening, Hospitalization)
  Sender: FDA-Public Use
  Company Number: US-EMCURE PHARMACEUTICALS LTD-2019-EPL-1170

PATIENT
  Age: 55 Year
  Sex: Male

DRUGS (2)
  1. ACETAMINOPHEN. [Suspect]
     Active Substance: ACETAMINOPHEN
     Dosage: 65 GRAM
     Route: 065
  2. MELATONIN [Suspect]
     Active Substance: MELATONIN
     Dosage: UNK
     Route: 065

REACTIONS (8)
  - Metabolic acidosis [Recovering/Resolving]
  - Alanine aminotransferase increased [Recovered/Resolved]
  - Toxicity to various agents [Recovering/Resolving]
  - Electrocardiogram QRS complex prolonged [Recovered/Resolved]
  - International normalised ratio increased [Recovered/Resolved]
  - Aspartate aminotransferase increased [Recovered/Resolved]
  - Unresponsive to stimuli [Recovered/Resolved]
  - Overdose [Recovering/Resolving]
